FAERS Safety Report 8957301 (Version 1)
Quarter: 2012Q4

REPORT INFORMATION
  Report Type: Spontaneous
  Country: RU (occurrence: None)
  Receive Date: 20121130
  Receipt Date: 20121130
  Transmission Date: 20130627
  Serious: Yes (Hospitalization)
  Sender: FDA-Public Use
  Company Number: MPS1-1000830

PATIENT
  Age: 12 Year
  Sex: Male
  Weight: 23 kg

DRUGS (7)
  1. ALDURAZYME [Suspect]
     Dosage: 2500 U, qw, Intravenous
     Route: 042
     Dates: start: 201202
  2. ALDURAZYME [Suspect]
     Dosage: 2000 U, qw, Intravenous
     Route: 042
     Dates: start: 200808, end: 201202
  3. CAPOTEN (CAPTOPRIL)_ [Concomitant]
  4. VEROSPIRON (SPIRONOLACTONE) [Concomitant]
  5. DIGOXIN (DIGOXIN) [Concomitant]
  6. ZYVOX (LINEZOLID) [Concomitant]
  7. FUROSEMIDE (FUROSEMIDE) [Concomitant]

REACTIONS (4)
  - Cardiac failure chronic [None]
  - Hypertension [None]
  - Tachycardia [None]
  - Dyspnoea [None]
